FAERS Safety Report 10758728 (Version 7)
Quarter: 2015Q4

REPORT INFORMATION
  Report Type: Report from Study
  Country: US (occurrence: US)
  Receive Date: 20150203
  Receipt Date: 20151001
  Transmission Date: 20160304
  Serious: Yes (Hospitalization, Other)
  Sender: FDA-Public Use
  Company Number: US-SA-2015SA012443

PATIENT
  Age: 59 Year
  Sex: Female

DRUGS (16)
  1. AUBAGIO [Suspect]
     Active Substance: TERIFLUNOMIDE
     Indication: MULTIPLE SCLEROSIS
     Route: 048
     Dates: start: 20150501, end: 20150622
  2. LEVOTHYROXINE. [Concomitant]
     Active Substance: LEVOTHYROXINE
     Dosage: STRENGTH: 25 MCG
  3. LANSOPRAZOLE. [Concomitant]
     Active Substance: LANSOPRAZOLE
     Dosage: STRENGTH: 30 MG DR
  4. SERTRALINE [Concomitant]
     Active Substance: SERTRALINE HYDROCHLORIDE
     Dosage: STRENGHT: 100 MG
  5. AUBAGIO [Suspect]
     Active Substance: TERIFLUNOMIDE
     Indication: MULTIPLE SCLEROSIS
     Route: 048
     Dates: start: 201506, end: 20150921
  6. PREDNISONE. [Concomitant]
     Active Substance: PREDNISONE
     Dosage: STRENGHT: 20 MG
  7. AMLODIPINE [Concomitant]
     Active Substance: AMLODIPINE BESYLATE
     Dosage: STRENGTH: 10 MG
  8. TOLTERODINE [Concomitant]
     Active Substance: TOLTERODINE
     Dosage: STRENGTH: 2 MG
  9. AUBAGIO [Suspect]
     Active Substance: TERIFLUNOMIDE
     Indication: MULTIPLE SCLEROSIS
     Route: 048
  10. SUPREP BOWEL PREP [Concomitant]
     Active Substance: MAGNESIUM SULFATE\POTASSIUM SULFATE\SODIUM SULFATE
     Dosage: SOLUTION
  11. AUBAGIO [Suspect]
     Active Substance: TERIFLUNOMIDE
     Indication: MULTIPLE SCLEROSIS
     Route: 048
     Dates: start: 20141128
  12. MODAFINIL. [Concomitant]
     Active Substance: MODAFINIL
     Dosage: STRENGTH: 200 MG
  13. AUBAGIO [Suspect]
     Active Substance: TERIFLUNOMIDE
     Indication: MULTIPLE SCLEROSIS
     Route: 048
     Dates: start: 20140814
  14. MONTELUKAST [Concomitant]
     Active Substance: MONTELUKAST SODIUM
     Dosage: STRENGTH: 10 MG
  15. LISINOPRIL. [Concomitant]
     Active Substance: LISINOPRIL
     Dosage: STRENGTH: 10 MG
  16. METHOCARBAMOL. [Concomitant]
     Active Substance: METHOCARBAMOL
     Dosage: STRENGTH: 500 MG

REACTIONS (17)
  - Pain in extremity [Unknown]
  - Hepatic steatosis [Not Recovered/Not Resolved]
  - Intervertebral disc protrusion [Unknown]
  - Hepatic enzyme increased [Unknown]
  - Surgery [Unknown]
  - Bladder operation [Unknown]
  - Blood potassium decreased [Unknown]
  - Alopecia [Unknown]
  - Asthma [Unknown]
  - Chronic obstructive pulmonary disease [Unknown]
  - Hearing aid user [Unknown]
  - Type 1 diabetes mellitus [Unknown]
  - Tooth infection [Unknown]
  - Restless legs syndrome [Unknown]
  - Unevaluable event [Not Recovered/Not Resolved]
  - Bronchitis [Unknown]
  - Drug dose omission [Unknown]

NARRATIVE: CASE EVENT DATE: 2014
